FAERS Safety Report 8033449-9 (Version None)
Quarter: 2012Q1

REPORT INFORMATION
  Report Type: 
  Country: None (occurrence: None)
  Receive Date: 20120110
  Receipt Date: 20111229
  Transmission Date: 20120608
  Serious: Yes (Other)
  Sender: FDA-Public Use
  Company Number: US-ROCHE-1027560

PATIENT
  Age: 53 Year
  Sex: Female

DRUGS (5)
  1. LAPATINIB [Suspect]
     Indication: BREAST CANCER
     Route: 048
     Dates: start: 20110523
  2. HERCEPTIN [Suspect]
     Indication: BREAST CANCER
     Route: 042
  3. CARBOPLATIN [Suspect]
     Indication: BREAST CANCER
     Dosage: 6 DOSES.
     Route: 042
     Dates: start: 20110523
  4. LAPATINIB [Suspect]
     Route: 048
  5. DOCETAXEL [Suspect]
     Indication: BREAST CANCER
     Dosage: 6 DOSES.
     Route: 042
     Dates: start: 20110523

REACTIONS (1)
  - ALANINE AMINOTRANSFERASE INCREASED [None]
